FAERS Safety Report 24717464 (Version 1)
Quarter: 2024Q4

REPORT INFORMATION
  Report Type: Spontaneous
  Country: RO (occurrence: RO)
  Receive Date: 20241210
  Receipt Date: 20241210
  Transmission Date: 20250115
  Serious: Yes (Hospitalization)
  Sender: SANDOZ
  Company Number: RO-SANDOZ-SDZ2024RO101266

PATIENT
  Age: 66 Year

DRUGS (1)
  1. ADALIMUMAB [Suspect]
     Active Substance: ADALIMUMAB
     Indication: Psoriasis
     Dosage: DOSAGE 1: UNIT=NOT AVAILABLE
     Route: 065

REACTIONS (1)
  - Granuloma annulare [Unknown]
